FAERS Safety Report 5615615-2 (Version None)
Quarter: 2008Q1

REPORT INFORMATION
  Report Type: 
  Country: None (occurrence: None)
  Receive Date: 20080206
  Receipt Date: 20080201
  Transmission Date: 20080703
  Serious: Yes (Death, Hospitalization)
  Sender: FDA-Public Use
  Company Number: A0707573A

PATIENT
  Age: 64 Year
  Sex: Female

DRUGS (2)
  1. LAPATINIB [Suspect]
     Indication: BREAST CANCER METASTATIC
     Route: 048
     Dates: start: 20071129
  2. CAPECITABINE [Suspect]
     Indication: BREAST CANCER METASTATIC
     Route: 048
     Dates: start: 20071129

REACTIONS (12)
  - ARRHYTHMIA [None]
  - CONFUSIONAL STATE [None]
  - DEHYDRATION [None]
  - DIARRHOEA [None]
  - DISSEMINATED INTRAVASCULAR COAGULATION [None]
  - HYPOTENSION [None]
  - NAUSEA [None]
  - RESPIRATORY DEPRESSION [None]
  - SEPSIS [None]
  - SOMNOLENCE [None]
  - TACHYCARDIA [None]
  - VOMITING [None]
